FAERS Safety Report 5080694-0 (Version None)
Quarter: 2006Q3

REPORT INFORMATION
  Report Type: 
  Country: None (occurrence: None)
  Receive Date: 20060720
  Receipt Date: 20050823
  Transmission Date: 20061208
  Serious: Yes (Other)
  Sender: FDA-Public Use
  Company Number: 2005119602

PATIENT
  Age: 71 Year
  Sex: Male

DRUGS (12)
  1. CELEBREX [Suspect]
     Indication: BACK PAIN
     Dosage: 200 MG (200 MG, 1 IN 1 D)
  2. ASPIRIN [Concomitant]
  3. VITAMIN E [Concomitant]
  4. VITAMIN B12 [Concomitant]
  5. CLARITIN [Concomitant]
  6. ALLOPURINOL [Concomitant]
  7. ACTOS [Concomitant]
  8. LIPITOR [Concomitant]
  9. DIABETA [Concomitant]
  10. ALBUTEROL [Concomitant]
  11. ATROVENT [Concomitant]
  12. AMITRIPTYLINE HCL [Concomitant]

REACTIONS (1)
  - TRANSIENT ISCHAEMIC ATTACK [None]
